FAERS Safety Report 23758937 (Version 1)
Quarter: 2024Q2

REPORT INFORMATION
  Report Type: Other
  Country: US (occurrence: None)
  Receive Date: 20240418
  Receipt Date: 20240418
  Transmission Date: 20240715
  Serious: No
  Sender: FDA-Public Use
  Company Number: US-ROCHE-3369901

PATIENT
  Sex: Female

DRUGS (8)
  1. BEVACIZUMAB [Suspect]
     Active Substance: BEVACIZUMAB
     Indication: Glioblastoma
     Route: 065
  2. TEMOZOLOMIDE [Concomitant]
     Active Substance: TEMOZOLOMIDE
  3. TEMOZOLOMIDE [Concomitant]
     Active Substance: TEMOZOLOMIDE
     Dosage: DAY 1-5
  4. MEMANTINE [Concomitant]
     Active Substance: MEMANTINE
  5. CAPECITABINE [Concomitant]
     Active Substance: CAPECITABINE
     Route: 065
  6. LOMUSTINE [Concomitant]
     Active Substance: LOMUSTINE
     Dosage: ON DAY 3 RECEIVED FOR THE NEXT FOUR MONTHS
  7. DABRAFENIB [Concomitant]
     Active Substance: DABRAFENIB
  8. TRAMETINIB [Concomitant]
     Active Substance: TRAMETINIB

REACTIONS (1)
  - Disease progression [Unknown]
